FAERS Safety Report 4319633-6 (Version None)
Quarter: 2004Q1

REPORT INFORMATION
  Report Type: 
  Country: None (occurrence: None)
  Receive Date: 20040319
  Receipt Date: 20030911
  Transmission Date: 20041129
  Serious: Yes (Disabling)
  Sender: FDA-Public Use
  Company Number: WAES 0309USA01683

PATIENT
  Age: 50 Year
  Sex: Male

DRUGS (5)
  1. CRIXIVAN [Suspect]
     Indication: HIV INFECTION
     Route: 048
     Dates: start: 19970426, end: 19980930
  2. LAMIVUDINE [Concomitant]
     Indication: HIV INFECTION
     Dates: start: 19970426
  3. NELFINAVIR MESYLATE [Suspect]
     Indication: HIV INFECTION
     Route: 048
     Dates: start: 19981001, end: 19990506
  4. NELFINAVIR MESYLATE [Suspect]
     Route: 048
     Dates: start: 19990507, end: 20040224
  5. ZIDOVUDINE [Concomitant]
     Indication: HIV INFECTION
     Dates: start: 19950324

REACTIONS (3)
  - CALCULUS URINARY [None]
  - HEPATIC FUNCTION ABNORMAL [None]
  - RENAL ATROPHY [None]
